FAERS Safety Report 8358413-1 (Version None)
Quarter: 2012Q2

REPORT INFORMATION
  Report Type: 
  Country: None (occurrence: None)
  Receive Date: 20120514
  Receipt Date: 20110516
  Transmission Date: 20120825
  Serious: Yes (Hospitalization)
  Sender: FDA-Public Use
  Company Number: US-ALEXION PHARMACEUTICALS INC.-A201100629

PATIENT
  Sex: Female

DRUGS (4)
  1. SOLIRIS [Suspect]
     Dosage: 900 MG Q 12 DAYS
     Dates: start: 20110118
  2. TANDEM PLUS [Concomitant]
     Indication: MINERAL SUPPLEMENTATION
     Dosage: UNK QD
  3. SOLIRIS [Suspect]
     Indication: PAROXYSMAL NOCTURNAL HAEMOGLOBINURIA
     Dosage: 600 MG QW
     Route: 042
     Dates: start: 20080612
  4. AMBIEN [Concomitant]
     Indication: SLEEP DISORDER
     Dosage: UNK PRN

REACTIONS (7)
  - HAEMATURIA [None]
  - DYSPNOEA [None]
  - DYSPEPSIA [None]
  - LOWER RESPIRATORY TRACT INFECTION [None]
  - CHEST PAIN [None]
  - PRODUCTIVE COUGH [None]
  - NASOPHARYNGITIS [None]
